FAERS Safety Report 24681285 (Version 1)
Quarter: 2024Q4

REPORT INFORMATION
  Report Type: Spontaneous
  Country: US (occurrence: US)
  Receive Date: 20241129
  Receipt Date: 20241129
  Transmission Date: 20250115
  Serious: Yes (Hospitalization, Other)
  Sender: BRISTOL-MYERS SQUIBB COMPANY
  Company Number: US-BRISTOL-MYERS SQUIBB COMPANY-2024-184733

PATIENT
  Age: 88 Year
  Sex: Male
  Weight: 72.3 kg

DRUGS (1)
  1. ELIQUIS [Suspect]
     Active Substance: APIXABAN
     Indication: Atrial fibrillation
     Dosage: IN THE MORNING AND AT BEDTIME (DISPENSE: 60 TABLET)
     Route: 048
     Dates: start: 20240925, end: 20241112

REACTIONS (3)
  - Cardiac amyloidosis [Unknown]
  - Presyncope [Unknown]
  - Fall [Unknown]

NARRATIVE: CASE EVENT DATE: 20241001
